FAERS Safety Report 7708418-6 (Version None)
Quarter: 2011Q3

REPORT INFORMATION
  Report Type: 
  Country: None (occurrence: None)
  Receive Date: 20110825
  Receipt Date: 20110817
  Transmission Date: 20111222
  Serious: No
  Sender: FDA-Public Use
  Company Number: CA-ELI_LILLY_AND_COMPANY-CA201108005293

PATIENT
  Sex: Male

DRUGS (4)
  1. ZYPREXA [Suspect]
     Dosage: 10 MG, UNKNOWN
  2. ZYPREXA ZYDIS [Suspect]
     Dosage: 5 MG, UNKNOWN
  3. ZYPREXA [Suspect]
     Dosage: 1 DF, UNKNOWN
  4. ZYPREXA [Suspect]
     Dosage: 5 MG, UNKNOWN

REACTIONS (6)
  - PLATELET COUNT DECREASED [None]
  - CHOKING SENSATION [None]
  - LOW DENSITY LIPOPROTEIN INCREASED [None]
  - DIABETES MELLITUS [None]
  - BLOOD TRIGLYCERIDES INCREASED [None]
  - BLOOD CHOLESTEROL INCREASED [None]
